FAERS Safety Report 14120543 (Version 3)
Quarter: 2017Q4

REPORT INFORMATION
  Report Type: Spontaneous
  Country: RO (occurrence: RO)
  Receive Date: 20171024
  Receipt Date: 20171229
  Transmission Date: 20180321
  Serious: Yes (Other)
  Sender: FDA-Public Use
  Company Number: RO-PFIZER INC-2017455549

PATIENT
  Age: 67 Year
  Sex: Female
  Weight: 85 kg

DRUGS (3)
  1. SUTENT [Suspect]
     Active Substance: SUNITINIB MALATE
     Indication: RENAL CANCER METASTATIC
     Dosage: 50 MG, CYCLIC (14 DAYS ON/7 DAYS OFF)
     Dates: start: 20170626
  2. GABAGAMMA [Concomitant]
     Active Substance: GABAPENTIN
     Dosage: UNK, 1X/DAY (IN THE MORNING)
  3. TENOX /00393701/ [Concomitant]
     Dosage: 5 MG, 1X/DAY (IN THE EVENING)

REACTIONS (1)
  - Blood pressure fluctuation [Recovered/Resolved]

NARRATIVE: CASE EVENT DATE: 20170926
